FAERS Safety Report 21884163 (Version 1)
Quarter: 2023Q1

REPORT INFORMATION
  Report Type: Spontaneous
  Country: US (occurrence: US)
  Receive Date: 20230119
  Receipt Date: 20230119
  Transmission Date: 20230418
  Serious: Yes (Hospitalization, Other)
  Sender: FDA-Public Use
  Company Number: US-PARI RESPIRATORY EQUIPMENT, INC.-2023PAR00003

PATIENT
  Sex: Female
  Weight: 28.299 kg

DRUGS (2)
  1. KITABIS PAK [Suspect]
     Active Substance: TOBRAMYCIN
     Indication: Illness
     Dosage: 1 AMPULE (300 MG) VIA NEBULIZER, EVERY 12 HOURS
  2. TOBRAMYCIN [Concomitant]
     Active Substance: TOBRAMYCIN

REACTIONS (4)
  - Spinal operation [Not Recovered/Not Resolved]
  - Pseudomonas infection [Unknown]
  - Tracheostomy infection [Unknown]
  - Off label use [Unknown]
